FAERS Safety Report 6317253-5 (Version None)
Quarter: 2009Q3

REPORT INFORMATION
  Report Type: 
  Country: None (occurrence: None)
  Receive Date: 20090819
  Receipt Date: 20090805
  Transmission Date: 20100115
  Serious: No
  Sender: FDA-Public Use
  Company Number: 8049995

PATIENT
  Age: 53 Year
  Sex: Male
  Weight: 58.2 kg

DRUGS (5)
  1. KEPPRA [Suspect]
     Indication: CONVULSION
     Dosage: 1000 MG 2/D; PO
     Route: 048
     Dates: start: 19920101, end: 20090101
  2. KEPPRA [Suspect]
     Indication: CONVULSION
     Dosage: 1000 MG 2/D; PO
     Route: 048
     Dates: start: 20090101
  3. .. [Suspect]
  4. LAMICTAL [Concomitant]
  5. KLONOPIN [Concomitant]

REACTIONS (1)
  - NO ADVERSE EVENT [None]
